FAERS Safety Report 9356722 (Version 2)
Quarter: 2013Q2

REPORT INFORMATION
  Report Type: Report from Study
  Country: US (occurrence: US)
  Receive Date: 20130619
  Receipt Date: 20130625
  Transmission Date: 20140414
  Serious: Yes (Death)
  Sender: FDA-Public Use
  Company Number: PHEH2013US013131

PATIENT
  Sex: Male
  Weight: 87.3 kg

DRUGS (2)
  1. GLEEVEC [Suspect]
     Indication: CHRONIC LYMPHOCYTIC LEUKAEMIA
     Dosage: 600 MG, DAILY
     Route: 048
     Dates: start: 201209
  2. GLEEVEC [Suspect]
     Dosage: 400 MG PER DAY, UNK
     Route: 048
     Dates: start: 200301

REACTIONS (2)
  - Chronic lymphocytic leukaemia transformation [Fatal]
  - Blast crisis in myelogenous leukaemia [Fatal]
